FAERS Safety Report 26081745 (Version 1)
Quarter: 2025Q4

REPORT INFORMATION
  Report Type: Spontaneous
  Country: US (occurrence: US)
  Receive Date: 20251124
  Receipt Date: 20251124
  Transmission Date: 20260117
  Serious: Yes (Other)
  Sender: STRIDES
  Company Number: US-STRIDES PHARMA UK LTD.-2025SP014508

PATIENT
  Age: 56 Year
  Sex: Male

DRUGS (2)
  1. PREDNISOLONE [Suspect]
     Active Substance: PREDNISOLONE
     Indication: Thyroiditis subacute
     Dosage: UNK
     Route: 065
  2. PREDNISOLONE [Suspect]
     Active Substance: PREDNISOLONE
     Indication: Hyperthyroidism

REACTIONS (4)
  - Pseudo Cushing^s syndrome [Unknown]
  - Symptom recurrence [Recovering/Resolving]
  - Hyperglycaemia [Unknown]
  - Product use in unapproved indication [Unknown]
